FAERS Safety Report 7893427-7 (Version None)
Quarter: 2011Q4

REPORT INFORMATION
  Report Type: 
  Country: None (occurrence: None)
  Receive Date: 20111104
  Receipt Date: 20111024
  Transmission Date: 20120403
  Serious: Yes (Hospitalization)
  Sender: FDA-Public Use
  Company Number: JP-ROCHE-799302

PATIENT
  Sex: Female
  Weight: 48 kg

DRUGS (22)
  1. ACTEMRA [Suspect]
     Indication: RHEUMATOID ARTHRITIS
     Route: 041
     Dates: start: 20080807, end: 20080807
  2. ACTEMRA [Suspect]
     Route: 041
     Dates: start: 20090721, end: 20090721
  3. PREDNISOLONE [Concomitant]
     Dosage: FORM: PERORAL AGENT
     Route: 048
  4. RISEDRONATE SODIUM [Concomitant]
     Dosage: FORM: PERORAL AGENT
     Route: 048
  5. ACTEMRA [Suspect]
     Route: 041
  6. ACTEMRA [Suspect]
     Route: 041
     Dates: start: 20081106, end: 20081106
  7. ACTEMRA [Suspect]
     Route: 041
     Dates: start: 20090818, end: 20090818
  8. KENTAN [Concomitant]
     Dosage: FORM: PERORAL AGENT
     Route: 048
  9. ACTEMRA [Suspect]
     Route: 041
     Dates: start: 20080904, end: 20080904
  10. ACTEMRA [Suspect]
     Route: 041
     Dates: start: 20081002, end: 20081002
  11. ACTEMRA [Suspect]
     Route: 041
     Dates: start: 20081204, end: 20081204
  12. ACTEMRA [Suspect]
     Route: 041
     Dates: start: 20090106, end: 20090106
  13. ACTEMRA [Suspect]
     Route: 041
     Dates: start: 20091210, end: 20100304
  14. AZULFIDINE [Concomitant]
     Dosage: FORM: ENTERIC COATING DRUG
     Route: 048
  15. ACTEMRA [Suspect]
     Route: 041
     Dates: start: 20090303, end: 20090303
  16. ACTEMRA [Suspect]
     Route: 041
     Dates: start: 20090526, end: 20090526
  17. ACTEMRA [Suspect]
     Route: 041
     Dates: start: 20090623, end: 20090623
  18. ACTEMRA [Suspect]
     Route: 041
     Dates: start: 20090203, end: 20090203
  19. ACTEMRA [Suspect]
     Route: 041
     Dates: start: 20090331, end: 20090331
  20. ACTEMRA [Suspect]
     Route: 041
     Dates: start: 20090428, end: 20090428
  21. ACTEMRA [Suspect]
     Route: 041
     Dates: start: 20100715, end: 20100826
  22. DICLOFENAC SODIUM [Concomitant]
     Route: 051

REACTIONS (2)
  - INTERVERTEBRAL DISC PROTRUSION [None]
  - DECUBITUS ULCER [None]
